FAERS Safety Report 4414354-3 (Version None)
Quarter: 2004Q2

REPORT INFORMATION
  Report Type: 
  Country: None (occurrence: None)
  Receive Date: 20040630
  Receipt Date: 20040302
  Transmission Date: 20050107
  Serious: No
  Sender: FDA-Public Use
  Company Number: 04P-163-0252055-00

PATIENT
  Age: 53 Year
  Sex: Female

DRUGS (6)
  1. HUMIRA [Suspect]
     Indication: RHEUMATOID ARTHRITIS
     Dosage: 40 MG, 1 IN 2 WK, SUBCUTANEOUS
     Route: 058
     Dates: start: 20030601
  2. PREDNISONE TAB [Concomitant]
  3. METHOTREXATE [Concomitant]
  4. METOPROLOL SUCCINATE [Concomitant]
  5. LEVOTHYROXINE SODIUM [Concomitant]
  6. FEXOFENADINE HYDROCHLORIDE [Concomitant]

REACTIONS (5)
  - FATIGUE [None]
  - INJECTION SITE ERYTHEMA [None]
  - INJECTION SITE PRURITUS [None]
  - INJECTION SITE WARMTH [None]
  - RHEUMATOID ARTHRITIS [None]
